FAERS Safety Report 18055100 (Version 1)
Quarter: 2020Q3

REPORT INFORMATION
  Report Type: Spontaneous
  Country: US (occurrence: US)
  Receive Date: 20200722
  Receipt Date: 20200722
  Transmission Date: 20201103
  Serious: Yes (Death)
  Sender: FDA-Public Use
  Company Number: None

PATIENT
  Age: 71 Year
  Sex: Male
  Weight: 147 kg

DRUGS (14)
  1. CICATRACURIUM [Concomitant]
     Dates: start: 20200612
  2. PANTOPRAZOLE [Concomitant]
     Active Substance: PANTOPRAZOLE
     Dates: start: 20200612
  3. PIPERACILLIN/TAZOBACTAM [Concomitant]
     Active Substance: PIPERACILLIN SODIUM\TAZOBACTAM SODIUM
     Dates: start: 20200612, end: 20200619
  4. NOREPINEPHRINE. [Concomitant]
     Active Substance: NOREPINEPHRINE
     Dates: start: 20200612
  5. CHOLECALCIFEROL [Concomitant]
     Active Substance: CHOLECALCIFEROL
     Dates: start: 20200613, end: 20200621
  6. DEXMEDETOMIDINE. [Concomitant]
     Active Substance: DEXMEDETOMIDINE
     Dates: start: 20200615
  7. PROPOFOL. [Concomitant]
     Active Substance: PROPOFOL
     Dates: start: 20200612
  8. AZITHROMYCIN ANHYDROUS. [Concomitant]
     Active Substance: AZITHROMYCIN ANHYDROUS
     Dates: start: 20200611, end: 20200613
  9. ATORVASTATIN [Concomitant]
     Active Substance: ATORVASTATIN
     Dates: start: 20200611
  10. REMDESIVIR. [Suspect]
     Active Substance: REMDESIVIR
     Indication: COVID-19
     Route: 042
     Dates: start: 20200612, end: 20200615
  11. HYDROXYCHLOROQUINE [Concomitant]
     Active Substance: HYDROXYCHLOROQUINE
     Dates: start: 20200611, end: 20200612
  12. FENTANYL. [Concomitant]
     Active Substance: FENTANYL
     Dates: start: 20200612
  13. AMIODARONE [Concomitant]
     Active Substance: AMIODARONE
     Dates: start: 20200611
  14. EPOPROSTANOL [Concomitant]
     Dates: start: 20200612

REACTIONS (3)
  - Glomerular filtration rate decreased [None]
  - Acute kidney injury [None]
  - Renal impairment [None]

NARRATIVE: CASE EVENT DATE: 20200615
